FAERS Safety Report 23123941 (Version 4)
Quarter: 2023Q4

REPORT INFORMATION
  Report Type: Spontaneous
  Country: US (occurrence: US)
  Receive Date: 20231030
  Receipt Date: 20231211
  Transmission Date: 20240110
  Serious: No
  Sender: FDA-Public Use
  Company Number: US-PFIZER INC-202300320650

PATIENT

DRUGS (1)
  1. THROMBIN-JMI [Suspect]
     Active Substance: THROMBIN
     Dosage: UNK
     Route: 061

REACTIONS (1)
  - Device issue [Unknown]
